FAERS Safety Report 26073317 (Version 1)
Quarter: 2025Q4

REPORT INFORMATION
  Report Type: Spontaneous
  Country: US (occurrence: US)
  Receive Date: 20251121
  Receipt Date: 20251121
  Transmission Date: 20260118
  Serious: No
  Sender: OTSUKA
  Company Number: US-MMM-Otsuka-0T4WK7SH

PATIENT
  Sex: Female
  Weight: 83.91 kg

DRUGS (2)
  1. NUEDEXTA [Suspect]
     Active Substance: DEXTROMETHORPHAN HYDROBROMIDE\QUINIDINE SULFATE
     Indication: Affect lability
     Dosage: 1 DF (20-10 MG), TWICE DAILY
     Route: 065
  2. NUEDEXTA [Suspect]
     Active Substance: DEXTROMETHORPHAN HYDROBROMIDE\QUINIDINE SULFATE
     Dosage: 1 DF (20-10 MG), ONCE DAILY
     Route: 065

REACTIONS (5)
  - Dizziness [Unknown]
  - Product dose omission issue [Unknown]
  - Intentional product use issue [Unknown]
  - Insurance issue [Unknown]
  - Inability to afford medication [Unknown]
